FAERS Safety Report 5488141-1 (Version None)
Quarter: 2007Q4

REPORT INFORMATION
  Report Type: 
  Country: None (occurrence: None)
  Receive Date: 20071017
  Receipt Date: 20071009
  Transmission Date: 20080405
  Serious: Yes (Hospitalization)
  Sender: FDA-Public Use
  Company Number: FR-ASTRAZENECA-2007CG01434

PATIENT
  Age: 85 Year
  Sex: Male

DRUGS (9)
  1. INEXIUM [Suspect]
     Route: 048
     Dates: start: 20070719
  2. SINTROM [Interacting]
     Route: 048
     Dates: end: 20070817
  3. TAZOCILLINE [Interacting]
     Route: 042
     Dates: start: 20070730, end: 20070819
  4. LEVOTHYROX [Concomitant]
  5. CARDENSIEL [Concomitant]
  6. DIFFU K [Concomitant]
  7. DIGOXIN [Concomitant]
  8. ATARAX [Concomitant]
  9. VANCOMYCIN [Concomitant]

REACTIONS (4)
  - DRUG INTERACTION [None]
  - HAEMATURIA [None]
  - HAEMORRHAGE URINARY TRACT [None]
  - INTERNATIONAL NORMALISED RATIO INCREASED [None]
